FAERS Safety Report 8738584 (Version 2)
Quarter: 2012Q4

REPORT INFORMATION
  Report Type: 
  Country: US (occurrence: US)
  Receive Date: 20120823
  Receipt Date: 20120911
  Transmission Date: 20130627
  Serious: Yes (Death, Other)
  Sender: FDA-Public Use
  Company Number: PHEH2012US016390

PATIENT
  Age: 30 None
  Sex: Male

DRUGS (14)
  1. SANDOSTATIN LAR DEPOT [Suspect]
     Indication: CARCINOID SYNDROME
     Dosage: 40 mg, QMO
     Route: 030
     Dates: start: 20101217
  2. SANDOSTATIN LAR DEPOT [Suspect]
     Indication: PANCREATIC NEUROENDOCRINE TUMOUR
     Dosage: 40 mg, QMO
     Route: 030
     Dates: start: 20120103
  3. FENTANYL [Concomitant]
     Dosage: UNK
  4. FENTANYL [Concomitant]
     Dosage: 100 ug, every 72 hours
  5. OXYLR [Concomitant]
  6. ALDACTONE [Concomitant]
     Dosage: 25 mg, BID
  7. LASIX [Concomitant]
     Dosage: 20 mg, UNK
  8. BENADRYL [Concomitant]
  9. TETRAHYDROCANNABINOL [Concomitant]
  10. COMPAZINE [Concomitant]
  11. NEXIUM [Concomitant]
  12. INDERAL [Concomitant]
  13. SUTENT [Concomitant]
     Dosage: 37.5 mg,4 weeks
     Dates: start: 20110225
  14. CANNABIS SATIVA SUBSP. INDICA TOP [Concomitant]

REACTIONS (18)
  - Phaeochromocytoma [Fatal]
  - Pancreatic carcinoma metastatic [Fatal]
  - Portal hypertension [Unknown]
  - Ascites [Unknown]
  - Pain [Unknown]
  - Fluid retention [Unknown]
  - Dysuria [Unknown]
  - Ocular icterus [Unknown]
  - Anxiety [Unknown]
  - Somnolence [Unknown]
  - Constipation [Unknown]
  - Nausea [Unknown]
  - Vomiting [Unknown]
  - Fatigue [Unknown]
  - Abdominal distension [Unknown]
  - Abdominal discomfort [Unknown]
  - Abdominal pain [Unknown]
  - Asthenia [Unknown]
